FAERS Safety Report 9330079 (Version 2)
Quarter: 2013Q2

REPORT INFORMATION
  Report Type: Spontaneous
  Country: US (occurrence: None)
  Receive Date: 20130531
  Receipt Date: 20130610
  Transmission Date: 20140414
  Serious: Yes (Other)
  Sender: FDA-Public Use
  Company Number: JPI-P-032228

PATIENT
  Age: 52 Year
  Sex: Female

DRUGS (3)
  1. XYREM [Suspect]
     Indication: NARCOLEPSY
     Dosage: ORAL.
     Dates: start: 20080111
  2. TRAZODONE [Concomitant]
  3. VITAMINS [Concomitant]

REACTIONS (2)
  - Rotator cuff repair [None]
  - Joint injury [None]
